FAERS Safety Report 17564238 (Version 2)
Quarter: 2020Q2

REPORT INFORMATION
  Report Type: Spontaneous
  Country: JP (occurrence: JP)
  Receive Date: 20200320
  Receipt Date: 20200403
  Transmission Date: 20200713
  Serious: Yes (Hospitalization, Other)
  Sender: FDA-Public Use
  Company Number: JP-APOTEX-2020AP008829

PATIENT
  Age: 63 Year
  Sex: Male

DRUGS (2)
  1. PAXIL [Suspect]
     Active Substance: PAROXETINE HYDROCHLORIDE
     Indication: PRODUCT USED FOR UNKNOWN INDICATION
     Dosage: UNK
     Route: 048
  2. DULOXETINE HYDROCHLORIDE. [Suspect]
     Active Substance: DULOXETINE HYDROCHLORIDE
     Indication: PRODUCT USED FOR UNKNOWN INDICATION
     Dosage: UNK
     Route: 065

REACTIONS (9)
  - Dehydration [Unknown]
  - Tachycardia [Unknown]
  - Tremor [Unknown]
  - Feeling abnormal [Unknown]
  - Renal impairment [Unknown]
  - Malaise [Unknown]
  - Alcoholic liver disease [Unknown]
  - Serotonin syndrome [Recovering/Resolving]
  - Hyperhidrosis [Unknown]
